FAERS Safety Report 23219856 (Version 2)
Quarter: 2024Q2

REPORT INFORMATION
  Report Type: Spontaneous
  Country: US (occurrence: US)
  Receive Date: 20231122
  Receipt Date: 20240528
  Transmission Date: 20240716
  Serious: No
  Sender: FDA-Public Use
  Company Number: US-AVADEL CNS PHARMACEUTICALS, LLC-2023AVA00091

PATIENT
  Sex: Female

DRUGS (11)
  1. LUMRYZ [Suspect]
     Active Substance: SODIUM OXYBATE
     Indication: Narcolepsy
     Dosage: 7.5 G, ONCE NIGHTLY PRIOR TO BEDTIME
     Route: 048
     Dates: start: 20230724, end: 2023
  2. LUMRYZ [Suspect]
     Active Substance: SODIUM OXYBATE
     Indication: Cataplexy
     Dosage: 7.5 G, ONCE NIGHTLY PRIOR TO BEDTIME
     Route: 048
     Dates: start: 2023
  3. LORAZEPAM [Concomitant]
     Active Substance: LORAZEPAM
  4. DEXTROAMPHET SACCHARAT, AMPHET ASPARTATE, DEXTROAMPHET SULFATE AND AMP [Concomitant]
     Active Substance: AMPHETAMINE ASPARTATE\AMPHETAMINE ASPARTATE MONOHYDRATE\AMPHETAMINE SULFATE\DEXTROAMPHETAMINE SACCHA
  5. RIZATRIPTAN [Concomitant]
     Active Substance: RIZATRIPTAN
  6. MONTELUKAST SODIUM [Concomitant]
     Active Substance: MONTELUKAST SODIUM
  7. TRELEGY ELLIPTA [Concomitant]
     Active Substance: FLUTICASONE FUROATE\UMECLIDINIUM BROMIDE\VILANTEROL TRIFENATATE
  8. FAMOTIDINE [Concomitant]
     Active Substance: FAMOTIDINE
  9. DESVENLAFAXINE SUCCINATE [Concomitant]
     Active Substance: DESVENLAFAXINE SUCCINATE
  10. ALBUTEROL SULFATE [Concomitant]
     Active Substance: ALBUTEROL SULFATE
  11. ALCOHOL [Concomitant]
     Active Substance: ALCOHOL

REACTIONS (2)
  - Influenza [Recovered/Resolved]
  - Intentional dose omission [Recovered/Resolved]

NARRATIVE: CASE EVENT DATE: 20230101
